APPROVED DRUG PRODUCT: LORAZEPAM
Active Ingredient: LORAZEPAM
Strength: 1MG
Dosage Form/Route: TABLET;ORAL
Application: A071194 | Product #001
Applicant: SANDOZ INC
Approved: Apr 15, 1988 | RLD: No | RS: No | Type: DISCN